FAERS Safety Report 23767613 (Version 1)
Quarter: 2024Q2

REPORT INFORMATION
  Report Type: Spontaneous
  Country: TH (occurrence: TH)
  Receive Date: 20240422
  Receipt Date: 20240422
  Transmission Date: 20240715
  Serious: Yes (Other)
  Sender: FDA-Public Use
  Company Number: TH-AMGEN-THASP2024076253

PATIENT
  Age: 81 Year
  Sex: Female

DRUGS (4)
  1. PANITUMUMAB [Suspect]
     Active Substance: PANITUMUMAB
     Indication: Colon cancer metastatic
     Dosage: 6 MILLIGRAM/KILOGRAM, Q2WK
     Route: 065
     Dates: start: 2023, end: 2023
  2. LEUCOVORIN [Concomitant]
     Active Substance: LEUCOVORIN\LEUCOVORIN CALCIUM
     Indication: Colon cancer metastatic
     Dosage: 520 MILLIGRAM/SQ. METER
     Dates: start: 202303, end: 2023
  3. OXALIPLATIN [Concomitant]
     Active Substance: OXALIPLATIN
     Indication: Colon cancer metastatic
     Dosage: 70 MILLIGRAM/SQ. METER
     Dates: start: 202303, end: 2023
  4. FLUOROURACIL [Concomitant]
     Active Substance: FLUOROURACIL
     Dosage: 1200 MILLIGRAM/SQ. METER
     Dates: start: 202303, end: 2023

REACTIONS (2)
  - Metastases to liver [Unknown]
  - Periorbital dermatitis [Recovered/Resolved]

NARRATIVE: CASE EVENT DATE: 20230401
